FAERS Safety Report 8036557-1 (Version None)
Quarter: 2012Q1

REPORT INFORMATION
  Report Type: 
  Country: None (occurrence: None)
  Receive Date: 20120109
  Receipt Date: 20111228
  Transmission Date: 20120608
  Serious: Yes (Hospitalization)
  Sender: FDA-Public Use
  Company Number: DKLU1075724

PATIENT
  Age: 64 Year
  Sex: Male

DRUGS (3)
  1. ONFI (CLOBAZAM) (CLOBAZAM) (TABLET) [Suspect]
     Indication: PRODUCT USED FOR UNKNOWN INDICATION
     Dosage: 1 DF DOSAGE FORM, 3 IN 1 D, ORAL
     Route: 048
     Dates: end: 20110317
  2. TERCIAN (CYAMEMAZINE) (25 MG, TABLET) [Suspect]
     Indication: PRODUCT USED FOR UNKNOWN INDICATION
     Dosage: 25 MG MILLIGRAM(S), 2 IN 1 D, ORAL
     Route: 048
  3. ZOLPIDEM TARTRATE [Suspect]
     Indication: PRODUCT USED FOR UNKNOWN INDICATION
     Dosage: 20 MG MILLIGRAM(S), 1 IN 1 D, ORAL
     Route: 048
     Dates: end: 20110306

REACTIONS (5)
  - FALL [None]
  - PNEUMONIA ASPIRATION [None]
  - RENAL FAILURE ACUTE [None]
  - HYPOXIA [None]
  - RHABDOMYOLYSIS [None]
